FAERS Safety Report 17411197 (Version 2)
Quarter: 2020Q1

REPORT INFORMATION
  Report Type: Spontaneous
  Country: US (occurrence: US)
  Receive Date: 20200212
  Receipt Date: 20200212
  Transmission Date: 20200409
  Serious: Yes (Hospitalization, Other)
  Sender: FDA-Public Use
  Company Number: US-GILEAD-2020-0450708

PATIENT
  Age: 57 Year
  Sex: Female

DRUGS (1)
  1. YESCARTA [Suspect]
     Active Substance: AXICABTAGENE CILOLEUCEL
     Indication: DIFFUSE LARGE B-CELL LYMPHOMA STAGE IV
     Dosage: UNK
     Route: 042
     Dates: start: 20180111, end: 20180111

REACTIONS (12)
  - Influenza [Recovered/Resolved]
  - Respiratory failure [Recovered/Resolved]
  - Sepsis [Recovered/Resolved]
  - Cytopenia [Unknown]
  - CD4 lymphocytes decreased [Recovering/Resolving]
  - Pneumonia [Recovered/Resolved]
  - Cytokine release syndrome [Unknown]
  - Neurotoxicity [Recovered/Resolved]
  - B-cell aplasia [Not Recovered/Not Resolved]
  - Cholecystitis [Unknown]
  - Hypogammaglobulinaemia [Unknown]
  - Status epilepticus [Unknown]
